FAERS Safety Report 20698560 (Version 1)
Quarter: 2022Q2

REPORT INFORMATION
  Report Type: Spontaneous
  Country: US (occurrence: US)
  Receive Date: 20220412
  Receipt Date: 20220412
  Transmission Date: 20220720
  Serious: No
  Sender: FDA-Public Use
  Company Number: US-BION-009687

PATIENT
  Age: 71 Year
  Sex: Female

DRUGS (1)
  1. ALEVE [Suspect]
     Active Substance: NAPROXEN SODIUM
     Indication: Pain
     Dosage: 2 LIQUID GELS AND THEN 2 MORE 12 HOURS LATER
     Route: 048

REACTIONS (3)
  - Abdominal pain upper [Recovered/Resolved]
  - Product prescribing error [Not Recovered/Not Resolved]
  - Incorrect dose administered [Not Recovered/Not Resolved]
